FAERS Safety Report 5097595-4 (Version None)
Quarter: 2006Q3

REPORT INFORMATION
  Report Type: 
  Country: None (occurrence: None)
  Receive Date: 20060901
  Receipt Date: 20060822
  Transmission Date: 20061208
  Serious: Yes (Other)
  Sender: FDA-Public Use
  Company Number: PHFR2006GB02668

PATIENT
  Age: 49 Year
  Sex: Female

DRUGS (2)
  1. TEMAZEPAM [Suspect]
     Dosage: 10MG/DAY
     Dates: start: 20060620
  2. PAROXETINE HCL [Suspect]
     Dosage: 20MG AT NIGHT
     Dates: start: 20060627

REACTIONS (3)
  - CONSCIOUSNESS FLUCTUATING [None]
  - DELIRIUM [None]
  - MYDRIASIS [None]
